FAERS Safety Report 15582533 (Version 2)
Quarter: 2018Q4

REPORT INFORMATION
  Report Type: Spontaneous
  Country: NO (occurrence: NO)
  Receive Date: 20181105
  Receipt Date: 20181110
  Transmission Date: 20190205
  Serious: Yes (Hospitalization)
  Sender: FDA-Public Use
  Company Number: NO-TEVA-2018-NO-971948

PATIENT
  Age: 73 Year
  Sex: Male

DRUGS (1)
  1. IRBESARTAN / HYDROKLORTIAZID ACTAVIS [Suspect]
     Active Substance: HYDROCHLOROTHIAZIDE\IRBESARTAN
     Indication: HYPERTENSION
     Route: 048

REACTIONS (1)
  - Epithelioid sarcoma [Unknown]
